FAERS Safety Report 5592673-5 (Version None)
Quarter: 2008Q1

REPORT INFORMATION
  Report Type: 
  Country: None (occurrence: None)
  Receive Date: 20080114
  Receipt Date: 20080103
  Transmission Date: 20080703
  Serious: Yes (Other)
  Sender: FDA-Public Use
  Company Number: 2008SP000219

PATIENT
  Age: 13 Year
  Sex: Male
  Weight: 49.8957 kg

DRUGS (1)
  1. CHILDREN'S CLARITIN [Suspect]
     Indication: SUICIDE ATTEMPT
     Dosage: ;ONCE; PO
     Route: 048
     Dates: start: 20080101, end: 20080101

REACTIONS (1)
  - SUICIDE ATTEMPT [None]
